FAERS Safety Report 9462255 (Version 3)
Quarter: 2013Q3

REPORT INFORMATION
  Report Type: Spontaneous
  Country: DO (occurrence: DO)
  Receive Date: 20130816
  Receipt Date: 20130822
  Transmission Date: 20140515
  Serious: Yes (Life-Threatening, Hospitalization, Disabling)
  Sender: FDA-Public Use
  Company Number: DO-GLAXOSMITHKLINE-A1037597A

PATIENT
  Age: 58 Year
  Sex: Female

DRUGS (1)
  1. VOTRIENT [Suspect]
     Indication: PRODUCT USED FOR UNKNOWN INDICATION
     Dosage: 800MG PER DAY
     Route: 048
     Dates: start: 20130703, end: 20130716

REACTIONS (3)
  - Erysipelas [Recovered/Resolved]
  - Haemoptysis [Recovered/Resolved]
  - Skin injury [Recovered/Resolved]
